FAERS Safety Report 8208741-5 (Version None)
Quarter: 2012Q1

REPORT INFORMATION
  Report Type: 
  Country: None (occurrence: None)
  Receive Date: 20120314
  Receipt Date: 20120229
  Transmission Date: 20120608
  Serious: Yes (Other)
  Sender: FDA-Public Use
  Company Number: CA-ROCHE-1044794

PATIENT
  Sex: Male
  Weight: 96.2 kg

DRUGS (9)
  1. CELEBREX [Concomitant]
  2. FOLIC ACID [Concomitant]
  3. SERTRALINE HYDROCHLORIDE [Concomitant]
  4. ASPIRIN [Concomitant]
  5. METOPROLOL SUCCINATE [Concomitant]
  6. RAMIPRIL [Concomitant]
  7. ACTEMRA [Suspect]
     Indication: RHEUMATOID ARTHRITIS
     Route: 042
     Dates: start: 20110405, end: 20120124
  8. METHOTREXATE [Concomitant]
  9. ATORVASTATIN [Concomitant]

REACTIONS (1)
  - LUNG DISORDER [None]
